FAERS Safety Report 5662443-8 (Version None)
Quarter: 2008Q1

REPORT INFORMATION
  Report Type: 
  Country: None (occurrence: None)
  Receive Date: 20080313
  Receipt Date: 20080310
  Transmission Date: 20080703
  Serious: Yes (Hospitalization, Other)
  Sender: FDA-Public Use
  Company Number: GB-WYE-G01181108

PATIENT
  Sex: Female
  Weight: 94 kg

DRUGS (5)
  1. EFFEXOR [Suspect]
     Indication: DEPRESSION
     Dosage: UNKNOWN
     Route: 048
     Dates: start: 19960101, end: 20070523
  2. EFFEXOR [Suspect]
     Route: 048
     Dates: start: 20070524, end: 20080118
  3. EFFEXOR [Suspect]
     Dosage: 37.5 MG FREQUENCY UNKNOWN
     Route: 048
     Dates: start: 20080119
  4. MACROGOL/POTASSIUM CHLORIDE/SODIUM BICARBONATE/SODIUM CHLORIDE [Concomitant]
     Indication: CONSTIPATION
     Dosage: 1 SACHET AS NEEDED
     Route: 048
     Dates: start: 20071023, end: 20071205
  5. DIAZEPAM [Concomitant]
     Indication: ANXIETY
     Dosage: 2 MG EVERY 1 PRN
     Route: 048
     Dates: start: 20071205

REACTIONS (3)
  - DRUG DEPENDENCE [None]
  - DRUG WITHDRAWAL SYNDROME [None]
  - SUPRAVENTRICULAR TACHYCARDIA [None]
